FAERS Safety Report 5387220-7 (Version None)
Quarter: 2007Q3

REPORT INFORMATION
  Report Type: 
  Country: None (occurrence: None)
  Receive Date: 20070716
  Receipt Date: 20070502
  Transmission Date: 20080115
  Serious: Yes (Hospitalization, Other)
  Sender: FDA-Public Use
  Company Number: US-RB-005560-07

PATIENT
  Sex: Male

DRUGS (3)
  1. SUBOXONE [Suspect]
     Dosage: UNKNOWN DOSE
     Route: 060
  2. FIORINAL [Concomitant]
     Dosage: DOSE UNKNOWN
     Route: 048
  3. COUMADIN [Concomitant]

REACTIONS (1)
  - CONVULSION [None]
